FAERS Safety Report 17874251 (Version 1)
Quarter: 2020Q2

REPORT INFORMATION
  Report Type: Spontaneous
  Country: US (occurrence: US)
  Receive Date: 20200609
  Receipt Date: 20200609
  Transmission Date: 20200714
  Serious: Yes (Other)
  Sender: FDA-Public Use
  Company Number: US-PROCTER_AND_GAMBLE-GS19142151

PATIENT
  Sex: Male

DRUGS (1)
  1. VICKS NYQUIL [Suspect]
     Active Substance: ACETAMINOPHEN\DEXTROMETHORPHAN HYDROBROMIDE\DOXYLAMINE SUCCINATE
     Route: 055

REACTIONS (3)
  - Product use in unapproved indication [Unknown]
  - Quadriplegia [Not Recovered/Not Resolved]
  - Wrong technique in product usage process [Unknown]
